FAERS Safety Report 8035560-5 (Version None)
Quarter: 2012Q1

REPORT INFORMATION
  Report Type: 
  Country: None (occurrence: None)
  Receive Date: 20120111
  Receipt Date: 20120105
  Transmission Date: 20120608
  Serious: Yes (Other)
  Sender: FDA-Public Use
  Company Number: CO-JNJFOC-20120102262

PATIENT
  Age: 56 Year
  Sex: Male

DRUGS (4)
  1. REMICADE [Suspect]
     Route: 042
     Dates: start: 20120105, end: 20120105
  2. REMICADE [Suspect]
     Indication: PSORIASIS
     Route: 042
     Dates: start: 20110929
  3. METHOTREXATE [Concomitant]
     Route: 065
  4. CORTICOSTEROIDS [Concomitant]
     Indication: PREMEDICATION
     Route: 065

REACTIONS (7)
  - INFUSION RELATED REACTION [None]
  - THROAT IRRITATION [None]
  - ERYTHEMA [None]
  - DYSPNOEA [None]
  - COUGH [None]
  - PRURITUS GENERALISED [None]
  - TACHYCARDIA [None]
